FAERS Safety Report 24544563 (Version 2)
Quarter: 2024Q4

REPORT INFORMATION
  Report Type: Spontaneous
  Country: KR (occurrence: KR)
  Receive Date: 20241024
  Receipt Date: 20241029
  Transmission Date: 20250114
  Serious: Yes (Life-Threatening, Other)
  Sender: MERCK
  Company Number: KR-009507513-2410KOR010121

PATIENT
  Age: 51 Year
  Sex: Male
  Weight: 50.9 kg

DRUGS (2)
  1. KEYTRUDA [Suspect]
     Active Substance: PEMBROLIZUMAB
     Indication: Non-small cell lung cancer metastatic
     Dosage: 2 DOSAGE FORM, QD
     Route: 042
     Dates: start: 20221123, end: 20221123
  2. CISPLATIN [Suspect]
     Active Substance: CISPLATIN
     Indication: Non-small cell lung cancer metastatic
     Dosage: 2 DOSAGE FORM, QD
     Route: 042
     Dates: start: 20221123, end: 20221123

REACTIONS (2)
  - Leukopenia [Recovered/Resolved]
  - Hypotension [Recovered/Resolved]

NARRATIVE: CASE EVENT DATE: 20221201
